FAERS Safety Report 17093721 (Version 1)
Quarter: 2019Q4

REPORT INFORMATION
  Report Type: Spontaneous
  Country: IT (occurrence: IT)
  Receive Date: 20191129
  Receipt Date: 20191129
  Transmission Date: 20200122
  Serious: Yes (Other)
  Sender: FDA-Public Use
  Company Number: PHHY2019IT193736

PATIENT
  Age: 40 Year
  Sex: Female

DRUGS (1)
  1. GILENYA [Suspect]
     Active Substance: FINGOLIMOD HYDROCHLORIDE
     Indication: RELAPSING-REMITTING MULTIPLE SCLEROSIS
     Dosage: UNK
     Route: 065

REACTIONS (8)
  - Quadriplegia [Unknown]
  - Motor dysfunction [Unknown]
  - Coma [Unknown]
  - Locked-in syndrome [Unknown]
  - Cognitive disorder [Unknown]
  - Rebound effect [Unknown]
  - Neurological decompensation [Unknown]
  - Multiple sclerosis relapse [Unknown]
